FAERS Safety Report 5286390-9 (Version None)
Quarter: 2007Q2

REPORT INFORMATION
  Report Type: 
  Country: None (occurrence: None)
  Receive Date: 20070404
  Receipt Date: 20070330
  Transmission Date: 20071010
  Serious: Yes (Other)
  Sender: FDA-Public Use
  Company Number: 2006UW11178

PATIENT
  Sex: Female
  Weight: 55.9 kg

DRUGS (6)
  1. SEROQUEL [Suspect]
     Route: 048
     Dates: start: 20040101, end: 20060101
  2. GEODON [Concomitant]
  3. HALDOL [Concomitant]
  4. NAVANE [Concomitant]
  5. RISPERDAL [Concomitant]
  6. THORAZINE [Concomitant]

REACTIONS (3)
  - DIABETES MELLITUS [None]
  - KETOACIDOSIS [None]
  - PANCREATITIS [None]
